FAERS Safety Report 9422176 (Version 1)
Quarter: 2013Q3

REPORT INFORMATION
  Report Type: Spontaneous
  Country: US (occurrence: None)
  Receive Date: 20130725
  Receipt Date: 20130725
  Transmission Date: 20140515
  Serious: Yes (Hospitalization)
  Sender: FDA-Public Use
  Company Number: None

PATIENT
  Age: 67 Year
  Sex: Female
  Weight: 68 kg

DRUGS (7)
  1. HABITROL [Suspect]
     Indication: SMOKING CESSATION THERAPY
  2. CYTOXAN [Concomitant]
  3. TAXOTERE [Suspect]
  4. NEULASTA [Concomitant]
  5. ATENOLOL [Concomitant]
  6. NORVASC [Concomitant]
  7. SIMVASTATIN [Concomitant]

REACTIONS (9)
  - Fatigue [None]
  - Dyspnoea [None]
  - Muscular weakness [None]
  - Pneumonia [None]
  - Urinary tract infection [None]
  - Pulmonary embolism [None]
  - Anaemia [None]
  - Dyspnoea [None]
  - Lower gastrointestinal haemorrhage [None]
